FAERS Safety Report 11788391 (Version 1)
Quarter: 2015Q4

REPORT INFORMATION
  Report Type: Spontaneous
  Country: US (occurrence: US)
  Receive Date: 20151201
  Receipt Date: 20151201
  Transmission Date: 20160305
  Serious: Yes (Hospitalization)
  Sender: FDA-Public Use
  Company Number: US-ACCORD-035883

PATIENT
  Age: 39 Year
  Sex: Male

DRUGS (1)
  1. QUETIAPINE [Suspect]
     Active Substance: QUETIAPINE
     Dosage: TOOK 10 TABLETS

REACTIONS (8)
  - Oedema [Unknown]
  - Nausea [Unknown]
  - Suicide attempt [Unknown]
  - Rhabdomyolysis [Unknown]
  - Intentional overdose [Unknown]
  - Acute kidney injury [Recovering/Resolving]
  - Lethargy [Unknown]
  - Vomiting [Unknown]
